FAERS Safety Report 7782321-8 (Version None)
Quarter: 2011Q3

REPORT INFORMATION
  Report Type: 
  Country: None (occurrence: None)
  Receive Date: 20110927
  Receipt Date: 20110914
  Transmission Date: 20111222
  Serious: Yes (Hospitalization, Other)
  Sender: FDA-Public Use
  Company Number: CA-ELI_LILLY_AND_COMPANY-CA201109003683

PATIENT
  Sex: Male

DRUGS (13)
  1. ZYPREXA [Suspect]
     Dosage: 7.5 MG, EACH EVENING
     Dates: start: 20000929, end: 20051006
  2. OXAZEPAM [Concomitant]
  3. CHLORPROMAZINE [Concomitant]
  4. LIPITOR [Concomitant]
  5. ZYPREXA [Suspect]
     Dosage: 15 MG, EACH EVENING
  6. CHLORAL HYDRATE [Concomitant]
  7. SEROQUEL [Concomitant]
  8. RISPERDAL [Concomitant]
  9. LITHIUM [Concomitant]
  10. NORVASC [Concomitant]
  11. DIVALPROEX SODIUM [Concomitant]
  12. ALTACE [Concomitant]
  13. BENZTROPINE MESYLATE [Concomitant]

REACTIONS (6)
  - CORONARY ARTERY DISEASE [None]
  - ACUTE MYOCARDIAL INFARCTION [None]
  - MYOCARDIAL INFARCTION [None]
  - TYPE 2 DIABETES MELLITUS [None]
  - AORTIC STENOSIS [None]
  - BUNDLE BRANCH BLOCK RIGHT [None]
